FAERS Safety Report 11320238 (Version 1)
Quarter: 2015Q3

REPORT INFORMATION
  Report Type: Spontaneous
  Country: FR (occurrence: FR)
  Receive Date: 20150729
  Receipt Date: 20150729
  Transmission Date: 20151125
  Serious: Yes (Congenital Anomaly)
  Sender: FDA-Public Use
  Company Number: FR-PFIZER INC-2015247724

PATIENT
  Age: 1 Hour
  Sex: Female
  Weight: 2.13 kg

DRUGS (7)
  1. SOLU-MEDROL [Suspect]
     Active Substance: METHYLPREDNISOLONE SODIUM SUCCINATE
     Indication: CUTANEOUS LUPUS ERYTHEMATOSUS
     Dosage: 1 MG/KG, 2 BOLUS
     Route: 064
     Dates: start: 20141005, end: 20141005
  2. LOVENOX [Suspect]
     Active Substance: ENOXAPARIN SODIUM
     Indication: THROMBOSIS PROPHYLAXIS
     Dosage: 4000 IU, 1X/DAY
     Route: 064
     Dates: start: 201503, end: 201503
  3. PLAQUENIL [Suspect]
     Active Substance: HYDROXYCHLOROQUINE SULFATE
     Indication: CUTANEOUS LUPUS ERYTHEMATOSUS
     Dosage: 200 MG, 2X/DAY
     Route: 064
  4. IMUREL [Suspect]
     Active Substance: AZATHIOPRINE SODIUM
     Indication: CUTANEOUS LUPUS ERYTHEMATOSUS
     Dosage: 25 MG, 1X/DAY
     Route: 064
  5. CORTANCYL [Suspect]
     Active Substance: PREDNISONE
     Indication: CUTANEOUS LUPUS ERYTHEMATOSUS
     Dosage: 60 MG, 1X/DAY
     Route: 064
  6. ZELITREX [Suspect]
     Active Substance: VALACYCLOVIR HYDROCHLORIDE
     Indication: HERPES ZOSTER
     Dosage: UNK
     Route: 064
     Dates: start: 20141116
  7. ASPEGIC [Suspect]
     Active Substance: ASPIRIN DL-LYSINE
     Indication: CUTANEOUS LUPUS ERYTHEMATOSUS
     Dosage: 100 MG, 1X/DAY
     Route: 064

REACTIONS (3)
  - Premature baby [Recovered/Resolved]
  - Maternal exposure during pregnancy [Not Recovered/Not Resolved]
  - Trisomy 21 [Not Recovered/Not Resolved]

NARRATIVE: CASE EVENT DATE: 20150316
